FAERS Safety Report 6432041-7 (Version None)
Quarter: 2009Q4

REPORT INFORMATION
  Report Type: 
  Country: None (occurrence: None)
  Receive Date: 20091109
  Receipt Date: 20091103
  Transmission Date: 20100525
  Serious: Yes (Life-Threatening, Hospitalization, Disabling)
  Sender: FDA-Public Use
  Company Number: ZA-ROCHE-662878

PATIENT
  Age: 6 Month
  Sex: Female

DRUGS (1)
  1. ROCEPHIN [Suspect]
     Dosage: FORM: BOLUS INJECTION.
     Route: 042
     Dates: end: 20091002

REACTIONS (6)
  - BLINDNESS [None]
  - BRAIN INJURY [None]
  - CARDIAC ARREST [None]
  - DEAFNESS UNILATERAL [None]
  - PAIN [None]
  - RESPIRATORY ARREST [None]
